FAERS Safety Report 15758796 (Version 1)
Quarter: 2018Q4

REPORT INFORMATION
  Report Type: Spontaneous
  Country: PT (occurrence: PT)
  Receive Date: 20181225
  Receipt Date: 20181225
  Transmission Date: 20190205
  Serious: Yes (Hospitalization, Other)
  Sender: FDA-Public Use
  Company Number: PHHY2018PT191989

PATIENT
  Age: 26 Year
  Sex: Male

DRUGS (13)
  1. LEVOTHYROXINE. [Suspect]
     Active Substance: LEVOTHYROXINE
     Indication: PERFORMANCE ENHANCING PRODUCT USE
     Dosage: 100 UG, QD
     Route: 065
  2. TESTOSTERONE CIPIONATE [Suspect]
     Active Substance: TESTOSTERONE
     Indication: PERFORMANCE ENHANCING PRODUCT USE
     Dosage: 500 MG, QW
     Route: 065
  3. ANASTROZOLE. [Suspect]
     Active Substance: ANASTROZOLE
     Indication: PERFORMANCE ENHANCING PRODUCT USE
     Dosage: 1 MG, QD
     Route: 065
  4. FLUOXYMESTERONE [Suspect]
     Active Substance: FLUOXYMESTERONE
     Indication: PERFORMANCE ENHANCING PRODUCT USE
     Dosage: 75 MG, QD
     Route: 065
  5. TRENBOLONE [Suspect]
     Active Substance: TRENBOLONE
     Indication: PERFORMANCE ENHANCING PRODUCT USE
     Dosage: 100 MG, QOD
     Route: 065
  6. DROSTANOLONE PROPIONATE [Suspect]
     Active Substance: DROMOSTANOLONE PROPIONATE
     Indication: PERFORMANCE ENHANCING PRODUCT USE
     Dosage: 100 MG, QOD
     Route: 065
  7. CLENBUTEROL [Suspect]
     Active Substance: CLENBUTEROL
     Indication: PERFORMANCE ENHANCING PRODUCT USE
     Dosage: 3 TIMES A DAY
     Route: 065
  8. LIOTHYRONINE [Suspect]
     Active Substance: LIOTHYRONINE
     Indication: PERFORMANCE ENHANCING PRODUCT USE
     Dosage: 50 UG, QD
     Route: 065
  9. CABERGOLINE. [Suspect]
     Active Substance: CABERGOLINE
     Indication: PERFORMANCE ENHANCING PRODUCT USE
     Dosage: 0.25 MG, QOD
     Route: 065
  10. TESTOSTERONE ENANTATE [Suspect]
     Active Substance: TESTOSTERONE
     Indication: PERFORMANCE ENHANCING PRODUCT USE
     Dosage: 250 MG, QD
     Route: 065
  11. MESTEROLONE [Suspect]
     Active Substance: MESTEROLONE
     Indication: PERFORMANCE ENHANCING PRODUCT USE
     Dosage: 4-6 TIMES A DAY
     Route: 065
  12. SPIRONOLACTONE ALTIZIDE ARROW [Concomitant]
     Active Substance: ALTHIAZIDE\SPIRONOLACTONE
     Indication: PRODUCT USED FOR UNKNOWN INDICATION
     Route: 065
  13. STANOZOLOL [Suspect]
     Active Substance: STANOZOLOL
     Indication: PERFORMANCE ENHANCING PRODUCT USE
     Dosage: 40 MG, QD
     Route: 065

REACTIONS (8)
  - Performance enhancing product use [Unknown]
  - Glucose tolerance decreased [Unknown]
  - Haematocrit increased [Unknown]
  - Blood glucose increased [Unknown]
  - Diabetes mellitus [Unknown]
  - Secondary hypogonadism [Unknown]
  - Autoimmune thyroiditis [Unknown]
  - Drug abuse [Unknown]
